FAERS Safety Report 25393642 (Version 2)
Quarter: 2025Q2

REPORT INFORMATION
  Report Type: Spontaneous
  Country: PH (occurrence: PH)
  Receive Date: 20250604
  Receipt Date: 20250609
  Transmission Date: 20250717
  Serious: Yes (Hospitalization, Other)
  Sender: NOVARTIS
  Company Number: PH-002147023-NVSC2025PH086143

PATIENT
  Sex: Male

DRUGS (1)
  1. GLIVEC [Suspect]
     Active Substance: IMATINIB MESYLATE
     Indication: Chronic myeloid leukaemia
     Dosage: 800 MG, QD (8 X 100 MG)
     Route: 065

REACTIONS (2)
  - Haemoglobin decreased [Unknown]
  - End stage renal disease [Unknown]
